FAERS Safety Report 4956517-4 (Version None)
Quarter: 2006Q1

REPORT INFORMATION
  Report Type: 
  Country: None (occurrence: None)
  Receive Date: 20060329
  Receipt Date: 20060302
  Transmission Date: 20060701
  Serious: Yes (Hospitalization)
  Sender: FDA-Public Use
  Company Number: US-MERCK-0603USA00881

PATIENT
  Age: 49 Year
  Sex: Female
  Weight: 102 kg

DRUGS (7)
  1. VIOXX [Suspect]
     Indication: MYALGIA
     Route: 048
     Dates: start: 20010829, end: 20040713
  2. VIOXX [Suspect]
     Indication: OSTEOARTHRITIS
     Route: 048
     Dates: start: 20010829, end: 20040713
  3. CARDIZEM [Concomitant]
     Indication: HYPERTENSION
     Route: 065
     Dates: start: 19900101, end: 20011228
  4. GLUCOPHAGE [Concomitant]
     Indication: DIABETES MELLITUS
     Route: 065
  5. AVANDIA [Concomitant]
     Indication: DIABETES MELLITUS
     Route: 065
  6. ESTRACE [Concomitant]
     Indication: HORMONE LEVEL ABNORMAL
     Route: 065
     Dates: start: 19880101
  7. DYAZIDE [Concomitant]
     Indication: HYPERTENSION
     Route: 065
     Dates: start: 19990101, end: 20030101

REACTIONS (13)
  - ANGINA UNSTABLE [None]
  - ANXIETY [None]
  - ARTERIOSCLEROSIS [None]
  - CORONARY ARTERY DISEASE [None]
  - DEPRESSION [None]
  - DIZZINESS [None]
  - HEADACHE [None]
  - HYPERCHOLESTEROLAEMIA [None]
  - MYOCARDIAL INFARCTION [None]
  - MYOCARDIAL ISCHAEMIA [None]
  - REFLUX OESOPHAGITIS [None]
  - RHINITIS ALLERGIC [None]
  - URINARY TRACT INFECTION [None]
